FAERS Safety Report 6134268-0 (Version None)
Quarter: 2009Q1

REPORT INFORMATION
  Report Type: 
  Country: None (occurrence: None)
  Receive Date: 20090325
  Receipt Date: 20090312
  Transmission Date: 20090719
  Serious: Yes (Hospitalization)
  Sender: FDA-Public Use
  Company Number: DSJ-2009-02572

PATIENT
  Age: 42 Year
  Sex: Male

DRUGS (3)
  1. OLMESARTAN MEDOXOMIL [Suspect]
     Indication: HYPERTENSION
     Dosage: 20 MG (20 MG,1 IN 1 D),PER ORAL
     Route: 048
  2. OMNIPAQUE 140 [Suspect]
     Indication: COMPUTERISED TOMOGRAM
     Dosage: 100 ML, INTRAVENOUS (NOT OTHERWISE SPECIFIED)
     Route: 042
     Dates: start: 20090224, end: 20090224
  3. AMLODIPINE [Concomitant]

REACTIONS (5)
  - ANAPHYLACTIC SHOCK [None]
  - ELECTROCARDIOGRAM ST SEGMENT ELEVATION [None]
  - RASH GENERALISED [None]
  - RESPIRATORY ARREST [None]
  - VENTRICULAR TACHYCARDIA [None]
